FAERS Safety Report 5927795-X (Version None)
Quarter: 2008Q4

REPORT INFORMATION
  Report Type: 
  Country: None (occurrence: None)
  Receive Date: 20081023
  Receipt Date: 20080922
  Transmission Date: 20090506
  Serious: No
  Sender: FDA-Public Use
  Company Number: US-BAYER-200817732NA

PATIENT
  Age: 45 Year
  Sex: Female

DRUGS (1)
  1. MIRENA [Suspect]
     Indication: CONTRACEPTION
     Route: 015
     Dates: start: 20070201

REACTIONS (6)
  - ACNE [None]
  - AMENORRHOEA [None]
  - BREAST PAIN [None]
  - BURNING SENSATION [None]
  - CERVICAL CYST [None]
  - HEADACHE [None]
